FAERS Safety Report 16974074 (Version 1)
Quarter: 2019Q4

REPORT INFORMATION
  Report Type: Spontaneous
  Country: IT (occurrence: IT)
  Receive Date: 20191030
  Receipt Date: 20191030
  Transmission Date: 20200122
  Serious: Yes (Other)
  Sender: FDA-Public Use
  Company Number: IT-PFIZER INC-2019462268

PATIENT
  Sex: Female

DRUGS (4)
  1. TOFACITINIB CITRATE [Suspect]
     Active Substance: TOFACITINIB CITRATE
     Indication: RHEUMATOID ARTHRITIS
     Dosage: 5 MG, TWICE A DAY (5 MG, BID)
     Route: 065
  2. METHOTREXATE SODIUM. [Suspect]
     Active Substance: METHOTREXATE SODIUM
     Indication: RHEUMATOID ARTHRITIS
     Dosage: 1 DF, UNK
     Route: 065
  3. BARICITINIB [Suspect]
     Active Substance: BARICITINIB
     Indication: RHEUMATOID ARTHRITIS
     Dosage: 1 DF, UNK
     Route: 065
  4. CORTISONE [Concomitant]
     Active Substance: CORTISONE
     Dosage: 1 DF, UNK
     Route: 065

REACTIONS (2)
  - Venous thrombosis [Unknown]
  - Thrombophlebitis [Unknown]
